FAERS Safety Report 10391391 (Version 1)
Quarter: 2014Q3

REPORT INFORMATION
  Report Type: Spontaneous
  Country: BR (occurrence: BR)
  Receive Date: 20140818
  Receipt Date: 20140818
  Transmission Date: 20150326
  Serious: Yes (Other)
  Sender: FDA-Public Use
  Company Number: BR-B.I. PHARMACEUTICALS,INC./RIDGEFIELD-2014-BI-38270BR

PATIENT
  Age: 66 Year
  Sex: Female
  Weight: 72 kg

DRUGS (10)
  1. AAS [Concomitant]
     Active Substance: ASPIRIN
     Route: 065
  2. TRADJENTA [Suspect]
     Active Substance: LINAGLIPTIN
     Indication: DIABETES MELLITUS
     Route: 065
  3. HUMALOG [Suspect]
     Active Substance: INSULIN LISPRO
     Indication: DIABETES MELLITUS
     Dosage: FORMULATION: KWIKPEN
     Route: 065
     Dates: start: 201404
  4. INALAPRIL [Concomitant]
     Route: 065
  5. OMEPRAZOL [Concomitant]
     Active Substance: OMEPRAZOLE
     Route: 065
  6. METILFORMINA [Concomitant]
     Route: 065
  7. INSULINA /01223201/ [Suspect]
     Active Substance: INSULIN NOS
     Indication: DIABETES MELLITUS
     Dosage: 10 U
     Route: 058
  8. LODOPINA [Concomitant]
     Route: 065
  9. INSULINA NPH [Suspect]
     Active Substance: INSULIN HUMAN
     Indication: DIABETES MELLITUS
     Dosage: 30 U
     Route: 058
  10. SOLOSOPI [Concomitant]
     Dosage: 50 MG
     Route: 065

REACTIONS (6)
  - Cerebrovascular accident [Not Recovered/Not Resolved]
  - Carotid artery occlusion [Not Recovered/Not Resolved]
  - Myopia [Not Recovered/Not Resolved]
  - Cataract [None]
  - Ocular hyperaemia [Not Recovered/Not Resolved]
  - Memory impairment [Not Recovered/Not Resolved]

NARRATIVE: CASE EVENT DATE: 20120427
